FAERS Safety Report 24072517 (Version 1)
Quarter: 2024Q3

REPORT INFORMATION
  Report Type: Spontaneous
  Country: GB (occurrence: GB)
  Receive Date: 20240710
  Receipt Date: 20240710
  Transmission Date: 20241017
  Serious: Yes (Other)
  Sender: SANDOZ
  Company Number: None

PATIENT

DRUGS (1)
  1. OLANZAPINE [Suspect]
     Active Substance: OLANZAPINE
     Indication: Product used for unknown indication
     Dosage: 15 MG, QD
     Route: 065
     Dates: end: 20240508

REACTIONS (3)
  - Mental impairment [Not Recovered/Not Resolved]
  - Rash [Recovering/Resolving]
  - Medication error [Unknown]
